FAERS Safety Report 12887220 (Version 1)
Quarter: 2016Q4

REPORT INFORMATION
  Report Type: Spontaneous
  Country: US (occurrence: US)
  Receive Date: 20161026
  Receipt Date: 20161026
  Transmission Date: 20170207
  Serious: Yes (Other)
  Sender: FDA-Public Use
  Company Number: US-ABBVIE-16P-163-1742678-00

PATIENT
  Sex: Female

DRUGS (4)
  1. LUPRON [Suspect]
     Active Substance: LEUPROLIDE ACETATE
     Indication: OVARIAN CYST
     Route: 050
  2. GIANVI [Suspect]
     Active Substance: DROSPIRENONE\ETHINYL ESTRADIOL
     Indication: ENDOMETRIOSIS
     Route: 048
  3. GIANVI [Suspect]
     Active Substance: DROSPIRENONE\ETHINYL ESTRADIOL
     Indication: OVARIAN CYST
  4. LUPRON [Suspect]
     Active Substance: LEUPROLIDE ACETATE
     Indication: ENDOMETRIOSIS

REACTIONS (7)
  - Dysmenorrhoea [Unknown]
  - Dyspareunia [Unknown]
  - Ovarian cyst [Unknown]
  - Endometriosis [Unknown]
  - Libido decreased [Unknown]
  - Vulvovaginal dryness [Unknown]
  - Cystitis interstitial [Unknown]
